FAERS Safety Report 25305331 (Version 1)
Quarter: 2025Q2

REPORT INFORMATION
  Report Type: Report from Study
  Country: CA (occurrence: CA)
  Receive Date: 20250513
  Receipt Date: 20250513
  Transmission Date: 20250716
  Serious: Yes (Hospitalization)
  Sender: CSL BEHRING
  Company Number: CA-BEH-2025204427

PATIENT
  Age: 15 Year
  Sex: Female
  Weight: 17 kg

DRUGS (1)
  1. HIZENTRA [Suspect]
     Active Substance: HUMAN IMMUNOGLOBULIN G
     Indication: Primary immunodeficiency syndrome
     Dosage: 5 G, QW
     Route: 058
     Dates: start: 20170228

REACTIONS (2)
  - Oesophageal disorder [Unknown]
  - Lymphadenopathy [Unknown]
